FAERS Safety Report 6793512-7 (Version None)
Quarter: 2010Q2

REPORT INFORMATION
  Report Type: 
  Country: None (occurrence: None)
  Receive Date: 20100624
  Receipt Date: 20100609
  Transmission Date: 20101027
  Serious: Yes (Death, Hospitalization)
  Sender: FDA-Public Use
  Company Number: US-MYLANLABS-2010S1007073

PATIENT
  Age: 74 Year
  Sex: Male

DRUGS (5)
  1. CLOZAPINE [Suspect]
     Indication: SCHIZOPHRENIA
     Route: 048
     Dates: start: 20031001
  2. CLOZAPINE [Suspect]
     Route: 048
     Dates: start: 20031001
  3. GLUCOPHAGE [Concomitant]
  4. VERAPAMIL [Concomitant]
  5. BISOPROLOL [Concomitant]

REACTIONS (1)
  - DEATH [None]
